FAERS Safety Report 8433082-0 (Version None)
Quarter: 2012Q2

REPORT INFORMATION
  Report Type: 
  Country: None (occurrence: None)
  Receive Date: 20120323
  Receipt Date: 20110831
  Transmission Date: 20120825
  Serious: Yes (Hospitalization, Other)
  Sender: FDA-Public Use
  Company Number: 163-21880-11060370

PATIENT
  Age: 67 Year
  Sex: Male
  Weight: 92.5338 kg

DRUGS (9)
  1. ACYCLOVIR [Concomitant]
  2. FRAGMIN [Concomitant]
  3. REVLIMID [Suspect]
     Indication: MULTIPLE MYELOMA
     Dosage: 15 MG, 1 IN 1 D, PO, 10 MG, QD/21 DAYS 1-2 WEEKS OFF BETWEEN CYCLES, PO
     Route: 048
     Dates: start: 20110101
  4. REVLIMID [Suspect]
     Indication: MULTIPLE MYELOMA
     Dosage: 15 MG, 1 IN 1 D, PO, 10 MG, QD/21 DAYS 1-2 WEEKS OFF BETWEEN CYCLES, PO
     Route: 048
     Dates: start: 20110201
  5. GABAPENTIN [Concomitant]
  6. TAMSULOSIN HCL [Concomitant]
  7. CENTRUM (CENTRUM) [Concomitant]
  8. AMLODIPINE [Concomitant]
  9. ARIXTRA [Concomitant]

REACTIONS (2)
  - HERPES ZOSTER [None]
  - DEEP VEIN THROMBOSIS [None]
